FAERS Safety Report 11294615 (Version 1)
Quarter: 2015Q3

REPORT INFORMATION
  Report Type: Spontaneous
  Country: US (occurrence: None)
  Receive Date: 20150722
  Receipt Date: 20150722
  Transmission Date: 20151125
  Serious: No
  Sender: FDA-Public Use
  Company Number: None

PATIENT
  Age: 51 Year
  Sex: Male

DRUGS (1)
  1. SUTENT [Suspect]
     Active Substance: SUNITINIB MALATE
     Indication: RENAL CANCER
     Dosage: 50MG, DAILY FOR 28 DAYS, ORAL
     Route: 048
     Dates: start: 20150627

REACTIONS (4)
  - Insomnia [None]
  - Decreased appetite [None]
  - Blister [None]
  - Alopecia [None]

NARRATIVE: CASE EVENT DATE: 20150627
